FAERS Safety Report 7800450-7 (Version None)
Quarter: 2011Q4

REPORT INFORMATION
  Report Type: 
  Country: None (occurrence: None)
  Receive Date: 20111006
  Receipt Date: 20110930
  Transmission Date: 20120403
  Serious: Yes (Hospitalization)
  Sender: FDA-Public Use
  Company Number: DK-PFIZER INC-DK-WYE-H05914408

PATIENT
  Age: 34 Year
  Sex: Female
  Weight: 65.5 kg

DRUGS (10)
  1. DEXAMETHASONE [Suspect]
     Route: 065
  2. ETOPOSIDE [Suspect]
     Route: 065
  3. ALLOPURINOL [Suspect]
     Route: 048
  4. ONDANSETRON [Suspect]
     Route: 065
  5. VOGALENE [Suspect]
     Route: 065
  6. POSACONAZOLE [Suspect]
     Indication: HEPATOSPLENIC CANDIDIASIS
     Dosage: 400 MG, 2X/DAY
     Route: 048
     Dates: start: 20071019, end: 20080125
  7. PANTOPRAZOLE SODIUM [Suspect]
     Route: 065
  8. POTASSIUM CHLORIDE [Suspect]
     Dosage: 750 MG, UNK
     Route: 048
  9. CYTARABINE [Suspect]
     Route: 065
  10. ACYCLOVIR [Suspect]
     Route: 065

REACTIONS (2)
  - DRUG INTERACTION [None]
  - SINOATRIAL BLOCK [None]
